FAERS Safety Report 4443206-8 (Version None)
Quarter: 2004Q3

REPORT INFORMATION
  Report Type: 
  Country: None (occurrence: None)
  Receive Date: 20040907
  Receipt Date: 20040907
  Transmission Date: 20050211
  Serious: Yes (Other)
  Sender: FDA-Public Use
  Company Number: None

PATIENT
  Sex: Male
  Weight: 131.9967 kg

DRUGS (2)
  1. CLONIDINE HCL [Suspect]
     Indication: HYPERTENSION
     Dosage: 0.2 MG B.I.D. ORAL
     Route: 048
     Dates: start: 19971010, end: 20040903
  2. MINOXIDIL [Concomitant]

REACTIONS (1)
  - DRUG INEFFECTIVE [None]
